FAERS Safety Report 15607168 (Version 1)
Quarter: 2018Q4

REPORT INFORMATION
  Report Type: Spontaneous
  Country: US (occurrence: US)
  Receive Date: 20181112
  Receipt Date: 20181112
  Transmission Date: 20190205
  Serious: No
  Sender: FDA-Public Use
  Company Number: US-LEO PHARMA-314827

PATIENT
  Sex: Male

DRUGS (1)
  1. PICATO [Suspect]
     Active Substance: INGENOL MEBUTATE
     Indication: ACTINIC KERATOSIS
     Dosage: USED 3 TUBES TO 3 DIFFERENT AREAS OF SCALP ONCE DAILY FOR 3 DAYS (1 TUBE PER AREA)
     Route: 061
     Dates: start: 20181031, end: 20181102

REACTIONS (4)
  - Application site erythema [Not Recovered/Not Resolved]
  - Application site pruritus [Not Recovered/Not Resolved]
  - Product administration error [Unknown]
  - Medication error [Unknown]
